FAERS Safety Report 6185397-7 (Version None)
Quarter: 2009Q2

REPORT INFORMATION
  Report Type: 
  Country: None (occurrence: None)
  Receive Date: 20090507
  Receipt Date: 20090423
  Transmission Date: 20091009
  Serious: Yes (Other)
  Sender: FDA-Public Use
  Company Number: 2009001238

PATIENT
  Age: 68 Year
  Sex: Female

DRUGS (5)
  1. ERLOTINIB (ERLOTINIB) (TABLET) (ERLOTINIB) [Suspect]
     Indication: PANCREATIC CARCINOMA
     Dosage: (QD),ORAL
     Route: 048
     Dates: start: 20080730
  2. BEVACIZUMAB [Suspect]
  3. CAPECITABINE (CAPECITABINE) [Suspect]
  4. GEMCITABINE [Suspect]
  5. LANSOPRAZOLE [Concomitant]

REACTIONS (1)
  - CATHETER THROMBOSIS [None]
